FAERS Safety Report 5341427-3 (Version None)
Quarter: 2007Q2

REPORT INFORMATION
  Report Type: 
  Country: None (occurrence: None)
  Receive Date: 20070530
  Receipt Date: 20070516
  Transmission Date: 20071010
  Serious: Yes (Disabling)
  Sender: FDA-Public Use
  Company Number: GXKR2007GB04407

PATIENT
  Age: 74 Year
  Sex: Female

DRUGS (1)
  1. SIMVASTATIN [Suspect]
     Indication: BLOOD CHOLESTEROL INCREASED
     Dosage: 40 MG, QD, ORAL
     Route: 048
     Dates: start: 20060801, end: 20060801

REACTIONS (1)
  - FEELING ABNORMAL [None]
